FAERS Safety Report 5296273-6 (Version None)
Quarter: 2007Q2

REPORT INFORMATION
  Report Type: 
  Country: None (occurrence: None)
  Receive Date: 20070413
  Receipt Date: 20070402
  Transmission Date: 20071010
  Serious: Yes (Other)
  Sender: FDA-Public Use
  Company Number: PHEH2007US04023

PATIENT
  Age: 64 Year
  Sex: Female

DRUGS (4)
  1. ZELNORM [Suspect]
     Indication: IRRITABLE BOWEL SYNDROME
     Dosage: 6MG, UNK
     Dates: end: 20070301
  2. LEXAPRO [Concomitant]
     Dosage: UNK, UNK
  3. XANAX [Concomitant]
     Dosage: UNK, UNK
  4. ZIGERID [Concomitant]

REACTIONS (4)
  - ABDOMINAL OPERATION [None]
  - ABDOMINAL PAIN UPPER [None]
  - EATING DISORDER [None]
  - WEIGHT DECREASED [None]
